FAERS Safety Report 5508398-8 (Version None)
Quarter: 2007Q4

REPORT INFORMATION
  Report Type: 
  Country: None (occurrence: None)
  Receive Date: 20071107
  Receipt Date: 20071031
  Transmission Date: 20080405
  Serious: Yes (Hospitalization)
  Sender: FDA-Public Use
  Company Number: PHHO2007AT13118

PATIENT
  Age: 78 Year
  Sex: Female
  Weight: 59 kg

DRUGS (5)
  1. LETROZOLE [Suspect]
     Indication: BREAST CANCER
     Dosage: 2.5 MG, QD
     Route: 048
     Dates: start: 20061120
  2. THROMBO ASS [Concomitant]
  3. THYREX [Concomitant]
  4. SIMVASTATIN [Concomitant]
  5. CAL-D-VITA [Concomitant]

REACTIONS (2)
  - ERYTHEMA MULTIFORME [None]
  - PRURITUS [None]
